FAERS Safety Report 20561773 (Version 1)
Quarter: 2022Q1

REPORT INFORMATION
  Report Type: Spontaneous
  Country: US (occurrence: None)
  Receive Date: 20220305
  Receipt Date: 20220305
  Transmission Date: 20220423
  Serious: Yes (Disabling)
  Sender: FDA-Public Use
  Company Number: None

PATIENT
  Age: 64 Year
  Sex: Male
  Weight: 76.5 kg

DRUGS (12)
  1. REPATHA [Suspect]
     Active Substance: EVOLOCUMAB
     Indication: Blood cholesterol increased
     Dosage: OTHER QUANTITY : 1 INJECTION(S);?OTHER FREQUENCY : EVERY 2 WEEKS;?
     Route: 055
     Dates: start: 20211227
  2. LEVOTHYROXINE [Concomitant]
     Active Substance: LEVOTHYROXINE
  3. ELIQUIS [Concomitant]
     Active Substance: APIXABAN
  4. LOSARTAN [Concomitant]
     Active Substance: LOSARTAN
  5. Spitonolactone [Concomitant]
  6. CARVEDILOL [Concomitant]
     Active Substance: CARVEDILOL
  7. ROSUVASTATIN [Concomitant]
     Active Substance: ROSUVASTATIN
  8. EZETIMIBE [Concomitant]
     Active Substance: EZETIMIBE
  9. DEVICE [Concomitant]
     Active Substance: DEVICE
  10. GLUCOSAMINE [Concomitant]
     Active Substance: GLUCOSAMINE
  11. FIBER [Concomitant]
     Active Substance: PSYLLIUM HUSK
  12. VITAMINS [Concomitant]
     Active Substance: VITAMINS

REACTIONS (1)
  - Diplopia [None]

NARRATIVE: CASE EVENT DATE: 20220130
